FAERS Safety Report 9277514 (Version 3)
Quarter: 2013Q3

REPORT INFORMATION
  Report Type: Spontaneous
  Country: GB (occurrence: GB)
  Receive Date: 20130508
  Receipt Date: 20130730
  Transmission Date: 20140515
  Serious: Yes (Other)
  Sender: FDA-Public Use
  Company Number: GB-JNJFOC-20130417685

PATIENT
  Sex: Female
  Weight: 110 kg

DRUGS (3)
  1. STELARA [Suspect]
     Indication: PSORIASIS
     Route: 058
     Dates: start: 20130410
  2. STELARA [Suspect]
     Indication: PSORIASIS
     Route: 058
     Dates: start: 20130312
  3. HYPERTENSION MEDICATION [Suspect]
     Indication: HYPERTENSION
     Route: 065

REACTIONS (3)
  - Fall [Unknown]
  - Dizziness [Recovering/Resolving]
  - Contusion [Unknown]
